FAERS Safety Report 10925024 (Version 3)
Quarter: 2015Q2

REPORT INFORMATION
  Report Type: Spontaneous
  Country: US (occurrence: US)
  Receive Date: 20150318
  Receipt Date: 20150414
  Transmission Date: 20150821
  Serious: Yes (Death, Hospitalization)
  Sender: FDA-Public Use
  Company Number: US-JNJFOC-20150308092

PATIENT
  Age: 91 Year
  Sex: Female

DRUGS (1)
  1. XARELTO [Suspect]
     Active Substance: RIVAROXABAN
     Indication: PRODUCT USED FOR UNKNOWN INDICATION
     Route: 048

REACTIONS (6)
  - Death [Fatal]
  - Hypoglycaemia [Unknown]
  - Fall [Unknown]
  - Haemorrhage [Unknown]
  - Pulmonary oedema [Unknown]
  - Hypovolaemia [Unknown]

NARRATIVE: CASE EVENT DATE: 201503
